FAERS Safety Report 4397526-6 (Version None)
Quarter: 2004Q2

REPORT INFORMATION
  Report Type: 
  Country: None (occurrence: None)
  Receive Date: 20040621
  Receipt Date: 20040209
  Transmission Date: 20050107
  Serious: Yes (Other)
  Sender: FDA-Public Use
  Company Number: USA-2004-0012986

PATIENT
  Age: 22 Year
  Sex: Female

DRUGS (3)
  1. OXYCONTIN [Suspect]
     Indication: PAIN
     Dosage: NASAL
     Route: 045
  2. FIORICET [Suspect]
     Indication: ABDOMINAL PAIN
  3. XANAX [Suspect]
     Indication: ABDOMINAL PAIN

REACTIONS (1)
  - POLYSUBSTANCE ABUSE [None]
